FAERS Safety Report 14216591 (Version 5)
Quarter: 2018Q4

REPORT INFORMATION
  Report Type: Spontaneous
  Country: US (occurrence: US)
  Receive Date: 20171122
  Receipt Date: 20181115
  Transmission Date: 20190204
  Serious: No
  Sender: FDA-Public Use
  Company Number: US-PFIZER INC-2017501617

PATIENT
  Age: 73 Year
  Sex: Female

DRUGS (3)
  1. PREMARIN [Suspect]
     Active Substance: ESTROGENS, CONJUGATED
     Dosage: 1 G, 2X/WEEK
     Route: 067
     Dates: start: 20171101, end: 20171117
  2. PREMARIN [Suspect]
     Active Substance: ESTROGENS, CONJUGATED
     Indication: ATROPHIC VULVOVAGINITIS
     Dosage: UNK, 1X/DAY (AT NIGHT)
     Route: 067
  3. PREMARIN [Suspect]
     Active Substance: ESTROGENS, CONJUGATED
     Indication: VULVOVAGINAL DRYNESS
     Dosage: 0.5 G, 2X/WEEK
     Route: 067
     Dates: start: 2017

REACTIONS (3)
  - Drug ineffective [Unknown]
  - Product quality issue [Recovered/Resolved]
  - Poor quality product administered [Recovered/Resolved]

NARRATIVE: CASE EVENT DATE: 201711
